FAERS Safety Report 9617307 (Version 1)
Quarter: 2013Q4

REPORT INFORMATION
  Report Type: Spontaneous
  Country: US (occurrence: None)
  Receive Date: 20131009
  Receipt Date: 20131009
  Transmission Date: 20140711
  Serious: Yes (Death, Hospitalization)
  Sender: FDA-Public Use
  Company Number: VAL_02761_2013

PATIENT
  Age: 23 Month
  Sex: 0
  Weight: 12.5 kg

DRUGS (3)
  1. CARBAMAZEPINE [Suspect]
     Indication: FEBRILE CONVULSION
     Dosage: 100 MG DAILY INCREASED OVER 5 MONTHS
  2. CARBAMAZEPINE [Suspect]
     Indication: EPILEPSY
     Dosage: 100 MG DAILY INCREASED OVER 5 MONTHS
  3. PHENYTOIN [Suspect]
     Indication: POST-TRAUMATIC EPILEPSY

REACTIONS (6)
  - Toxicity to various agents [None]
  - Unresponsive to stimuli [None]
  - Cyanosis [None]
  - Cardiac arrest [None]
  - Pyrexia [None]
  - Coma scale abnormal [None]
